FAERS Safety Report 5510969-X (Version None)
Quarter: 2007Q4

REPORT INFORMATION
  Report Type: 
  Country: None (occurrence: None)
  Receive Date: 20071109
  Receipt Date: 20071105
  Transmission Date: 20080405
  Serious: Yes (Life-Threatening, Hospitalization)
  Sender: FDA-Public Use
  Company Number: PHEH2007US14442

PATIENT
  Sex: Male

DRUGS (4)
  1. TEKTURNA [Suspect]
     Indication: HYPERTENSION
     Dosage: 150 MG, QD
     Route: 048
     Dates: start: 20071001, end: 20071105
  2. DIOVAN [Concomitant]
     Dosage: 320 MG, UNK
  3. METOPROLOL TARTRATE [Concomitant]
     Dosage: 100 MG, UNK
  4. NORVASC [Concomitant]
     Dosage: 10 MG, UNK

REACTIONS (5)
  - ASTHENIA [None]
  - FATIGUE [None]
  - HEADACHE [None]
  - HYPOTENSION [None]
  - LOSS OF CONSCIOUSNESS [None]
